FAERS Safety Report 7593353-7 (Version None)
Quarter: 2011Q3

REPORT INFORMATION
  Report Type: 
  Country: None (occurrence: None)
  Receive Date: 20110706
  Receipt Date: 20110627
  Transmission Date: 20111222
  Serious: Yes (Hospitalization, Other)
  Sender: FDA-Public Use
  Company Number: US-ACTELION-A-US2011-50939

PATIENT

DRUGS (2)
  1. TRACLEER [Suspect]
     Dosage: UNK
     Route: 048
     Dates: start: 20110624
  2. TRACLEER [Suspect]
     Indication: PULMONARY ARTERIAL HYPERTENSION
     Dosage: UNK
     Route: 048
     Dates: start: 20110525, end: 20110603

REACTIONS (2)
  - PNEUMONIA [None]
  - CHEMOTHERAPY [None]
